FAERS Safety Report 8218726-0 (Version None)
Quarter: 2012Q1

REPORT INFORMATION
  Report Type: 
  Country: None (occurrence: None)
  Receive Date: 20120319
  Receipt Date: 20120311
  Transmission Date: 20120608
  Serious: Yes (Hospitalization)
  Sender: FDA-Public Use
  Company Number: PHHO2012IL003544

PATIENT
  Sex: Female
  Weight: 91.7 kg

DRUGS (6)
  1. LEVOTHYROXINE SODIUM [Concomitant]
     Indication: HYPERTHYROIDISM
     Dosage: 100 MG, QD
     Dates: start: 19920101
  2. AFINITOR [Suspect]
     Indication: BREAST CANCER METASTATIC
     Dosage: 10 MG, QD
     Dates: start: 20120214, end: 20120226
  3. ESCITALOPRAM [Concomitant]
     Indication: AFFECTIVE DISORDER
     Dosage: 10 MG, QD
     Dates: start: 20080801
  4. LETROZOLE [Suspect]
     Indication: BREAST CANCER METASTATIC
     Dosage: 2.5 MG, QD
     Dates: start: 20120214
  5. CANNABIS [Concomitant]
     Indication: PAIN
     Dosage: UNK
     Dates: start: 20120207
  6. NORMITEN [Concomitant]
     Indication: HYPERTENSION
     Dosage: 25 MG, QD
     Dates: start: 20020101

REACTIONS (2)
  - CONFUSIONAL STATE [None]
  - HYPERCALCAEMIA [None]
